FAERS Safety Report 6940603-3 (Version None)
Quarter: 2010Q3

REPORT INFORMATION
  Report Type: 
  Country: None (occurrence: None)
  Receive Date: 20100825
  Receipt Date: 20100810
  Transmission Date: 20110219
  Serious: Yes (Hospitalization, Other)
  Sender: FDA-Public Use
  Company Number: PHHY2010BR21465

PATIENT
  Age: 46 Year
  Sex: Female

DRUGS (4)
  1. METHERGINE [Suspect]
     Indication: HAEMORRHAGE
     Dosage: 1 DF, DAILY
     Route: 048
     Dates: start: 20030101
  2. METHERGINE [Suspect]
     Dosage: 0.125 MG, UNK
  3. METHERGINE [Suspect]
     Dosage: 1 DF, Q8H
  4. METHERGINE [Suspect]
     Dosage: UNK
     Dates: start: 20100801

REACTIONS (8)
  - BENIGN OVARIAN TUMOUR [None]
  - BLOODY DISCHARGE [None]
  - HAEMORRHAGE [None]
  - HYPERTENSION [None]
  - NERVOUSNESS [None]
  - OVARIAN CYST [None]
  - SURGERY [None]
  - TREATMENT NONCOMPLIANCE [None]
